FAERS Safety Report 16669535 (Version 1)
Quarter: 2019Q3

REPORT INFORMATION
  Report Type: Spontaneous
  Country: US (occurrence: US)
  Receive Date: 20190805
  Receipt Date: 20190805
  Transmission Date: 20191004
  Serious: Yes (Other)
  Sender: FDA-Public Use
  Company Number: None

PATIENT
  Age: 74 Year
  Sex: Female
  Weight: 84.6 kg

DRUGS (1)
  1. GAMUNEX-C [Suspect]
     Active Substance: HUMAN IMMUNOGLOBULIN G
     Indication: MYASTHENIA GRAVIS
     Dosage: ?          OTHER FREQUENCY:X2D Q 3 WEEKS;?
     Route: 042

REACTIONS (4)
  - Infusion related reaction [None]
  - Rash generalised [None]
  - Rash papular [None]
  - Rash pruritic [None]

NARRATIVE: CASE EVENT DATE: 20190802
